FAERS Safety Report 4592754-9 (Version None)
Quarter: 2005Q1

REPORT INFORMATION
  Report Type: 
  Country: None (occurrence: None)
  Receive Date: 20050228
  Receipt Date: 20040916
  Transmission Date: 20050727
  Serious: Yes (Other)
  Sender: FDA-Public Use
  Company Number: PHNU2004DE03239

PATIENT
  Age: 19 Year
  Sex: Male
  Weight: 75 kg

DRUGS (4)
  1. NOVALGIN [Concomitant]
     Dosage: 20 DRP, ONCE/SINGLE
     Dates: start: 20040828, end: 20040828
  2. TEGRETOL [Suspect]
     Dosage: 600 MG/DAY
     Route: 048
     Dates: start: 20040828, end: 20040828
  3. TEGRETOL [Suspect]
     Dosage: 400 MG/DAY
     Route: 048
     Dates: start: 20040829, end: 20040906
  4. TEGRETOL [Suspect]
     Dosage: 400 MG/DAY
     Route: 048
     Dates: start: 20040827, end: 20040827

REACTIONS (5)
  - EXANTHEM [None]
  - EYE PAIN [None]
  - GLAUCOMA [None]
  - LEUKOPENIA [None]
  - PYREXIA [None]
